FAERS Safety Report 8907588 (Version 1)
Quarter: 2012Q4

REPORT INFORMATION
  Report Type: 
  Country: US (occurrence: US)
  Receive Date: 20121114
  Receipt Date: 20121114
  Transmission Date: 20130627
  Serious: No
  Sender: FDA-Public Use
  Company Number: US-ABBOTT-12P-163-0896533-00

PATIENT
  Sex: Male
  Weight: 83.99 kg

DRUGS (3)
  1. TRICOR [Suspect]
     Indication: PRODUCT USED FOR UNKNOWN INDICATION
  2. TRICOR [Suspect]
     Dates: start: 2009
  3. MYLAND [Concomitant]
     Indication: HEART RATE IRREGULAR

REACTIONS (2)
  - Constipation [Recovered/Resolved]
  - Low density lipoprotein increased [Unknown]
